FAERS Safety Report 16566654 (Version 1)
Quarter: 2019Q3

REPORT INFORMATION
  Report Type: Report from Study
  Country: IN (occurrence: IN)
  Receive Date: 20190712
  Receipt Date: 20190712
  Transmission Date: 20191004
  Serious: Yes (Death)
  Sender: FDA-Public Use
  Company Number: IN-ASTRAZENECA-2019SE99879

PATIENT
  Age: 24713 Day
  Sex: Female

DRUGS (1)
  1. FASLODEX [Suspect]
     Active Substance: FULVESTRANT
     Indication: BREAST CANCER
     Dosage: 500.0MG UNKNOWN
     Route: 030
     Dates: start: 20180315, end: 201906

REACTIONS (1)
  - Death [Fatal]

NARRATIVE: CASE EVENT DATE: 20190629
